FAERS Safety Report 18237418 (Version 1)
Quarter: 2020Q3

REPORT INFORMATION
  Report Type: Spontaneous
  Country: US (occurrence: US)
  Receive Date: 20200907
  Receipt Date: 20200907
  Transmission Date: 20201103
  Serious: No
  Sender: FDA-Public Use
  Company Number: US-HORIZON-TEP-1769-2020

PATIENT
  Age: 51 Year
  Sex: Female
  Weight: 100 kg

DRUGS (2)
  1. TEPEZZA [Suspect]
     Active Substance: TEPROTUMUMAB-TRBW
     Indication: PRODUCT USED FOR UNKNOWN INDICATION
     Dosage: 1000MG
     Route: 042
     Dates: start: 20200902
  2. PYRANTEL PAMOATE. [Concomitant]
     Active Substance: PYRANTEL PAMOATE
     Indication: ENTEROBIASIS

REACTIONS (1)
  - Enterobiasis [Unknown]
